FAERS Safety Report 16057912 (Version 3)
Quarter: 2019Q2

REPORT INFORMATION
  Report Type: Report from Study
  Country: CA (occurrence: CA)
  Receive Date: 20190311
  Receipt Date: 20190403
  Transmission Date: 20190711
  Serious: Yes (Other)
  Sender: FDA-Public Use
  Company Number: CA-NALPROPION PHARMACEUTICALS INC.-2019-006741

PATIENT

DRUGS (4)
  1. CONTRAVE [Suspect]
     Active Substance: BUPROPION HYDROCHLORIDE\NALTREXONE HYDROCHLORIDE
     Dosage: 2 TABLETS IN MORNING AND 2 TABLETS IN EVENING (2 DOSAGE FORMS,2 IN 1 D)
     Route: 048
     Dates: start: 201902, end: 201903
  2. CONTRAVE [Suspect]
     Active Substance: BUPROPION HYDROCHLORIDE\NALTREXONE HYDROCHLORIDE
     Indication: WEIGHT CONTROL
     Dosage: IN THE MORNING (REGULAR TITRATION) (1 DOSAGE FORMS,1 IN 1 D)
     Route: 048
     Dates: start: 201901, end: 201901
  3. CONTRAVE [Suspect]
     Active Substance: BUPROPION HYDROCHLORIDE\NALTREXONE HYDROCHLORIDE
     Dosage: 1 TABLET IN MORNING AND 1 TABLET IN EVENING (REGULAR TITRATION) (1 DOSAGE FORMS,2 IN 1 D)
     Route: 048
     Dates: start: 201901, end: 201901
  4. CONTRAVE [Suspect]
     Active Substance: BUPROPION HYDROCHLORIDE\NALTREXONE HYDROCHLORIDE
     Dosage: 2 TABLETS IN MORNING AND 1 TABLET IN EVENING (REGULAR TITRATION)
     Route: 048
     Dates: start: 201901, end: 201902

REACTIONS (3)
  - Weight decreased [Not Recovered/Not Resolved]
  - Diarrhoea [Recovered/Resolved]
  - Therapeutic product effect incomplete [Unknown]

NARRATIVE: CASE EVENT DATE: 201901
